FAERS Safety Report 20482851 (Version 11)
Quarter: 2023Q1

REPORT INFORMATION
  Report Type: Spontaneous
  Country: US (occurrence: US)
  Receive Date: 20220217
  Receipt Date: 20230327
  Transmission Date: 20230418
  Serious: Yes (Other)
  Sender: FDA-Public Use
  Company Number: US-GLAXOSMITHKLINE-US2022AMR027167

PATIENT
  Age: 64 Year
  Sex: Female

DRUGS (2)
  1. ZEJULA [Suspect]
     Active Substance: NIRAPARIB
     Indication: Ovarian cancer
     Dosage: 200 MG, QD
     Route: 048
     Dates: start: 20220127, end: 20220214
  2. ZEJULA [Suspect]
     Active Substance: NIRAPARIB
     Dosage: 100 MG, QD
     Dates: start: 20220309, end: 20230228

REACTIONS (27)
  - Recurrent cancer [Not Recovered/Not Resolved]
  - Metastases to lung [Not Recovered/Not Resolved]
  - Platelet count decreased [Not Recovered/Not Resolved]
  - Fatigue [Not Recovered/Not Resolved]
  - Insomnia [Recovering/Resolving]
  - Mucosal inflammation [Unknown]
  - Stomatitis [Not Recovered/Not Resolved]
  - Skin ulcer [Recovered/Resolved]
  - Mouth ulceration [Not Recovered/Not Resolved]
  - Limb injury [Recovered/Resolved]
  - Decreased activity [Not Recovered/Not Resolved]
  - Blood pressure increased [Recovering/Resolving]
  - Tongue rough [Not Recovered/Not Resolved]
  - Tongue pruritus [Not Recovered/Not Resolved]
  - Constipation [Unknown]
  - Diarrhoea [Unknown]
  - Dry mouth [Not Recovered/Not Resolved]
  - Increased upper airway secretion [Unknown]
  - Eructation [Not Recovered/Not Resolved]
  - COVID-19 [Recovering/Resolving]
  - Malaise [Unknown]
  - Gastrooesophageal reflux disease [Not Recovered/Not Resolved]
  - Condition aggravated [Not Recovered/Not Resolved]
  - SARS-CoV-2 test positive [Recovering/Resolving]
  - Drug ineffective [Not Recovered/Not Resolved]
  - Off label use [Not Recovered/Not Resolved]
  - Drug monitoring procedure not performed [Unknown]

NARRATIVE: CASE EVENT DATE: 20220127
